FAERS Safety Report 7583581-9 (Version None)
Quarter: 2011Q2

REPORT INFORMATION
  Report Type: 
  Country: None (occurrence: None)
  Receive Date: 20110630
  Receipt Date: 20110609
  Transmission Date: 20111010
  Serious: Yes (Hospitalization)
  Sender: FDA-Public Use
  Company Number: A0835072A

PATIENT
  Age: 63 Year
  Sex: Male

DRUGS (1)
  1. AVANDIA [Suspect]
     Dosage: 8MG PER DAY
     Route: 048
     Dates: end: 20080901

REACTIONS (4)
  - MYOCARDIAL INFARCTION [None]
  - VISUAL ACUITY REDUCED [None]
  - VISION BLURRED [None]
  - CARDIAC FAILURE CONGESTIVE [None]
